FAERS Safety Report 5030795-8 (Version None)
Quarter: 2006Q2

REPORT INFORMATION
  Report Type: 
  Country: None (occurrence: None)
  Receive Date: 20060614
  Receipt Date: 20060605
  Transmission Date: 20061013
  Serious: Yes (Hospitalization)
  Sender: FDA-Public Use
  Company Number: 200612370GDS

PATIENT
  Age: 43 Year
  Sex: Female

DRUGS (2)
  1. AVELOX [Suspect]
     Indication: BRONCHOPNEUMONIA
     Dosage: 400 MG, QD, ORAL
     Route: 048
     Dates: start: 20060120, end: 20060128
  2. AVELOX [Suspect]
     Indication: BRONCHOPNEUMONIA
     Dosage: 400 MG, QD, ORAL
     Route: 048
     Dates: start: 20060131, end: 20060204

REACTIONS (5)
  - ASTHENIA [None]
  - CHILLS [None]
  - HYPERHIDROSIS [None]
  - HYPOGLYCAEMIA [None]
  - MALAISE [None]
